FAERS Safety Report 4980918-1 (Version None)
Quarter: 2006Q2

REPORT INFORMATION
  Report Type: 
  Country: None (occurrence: None)
  Receive Date: 20060424
  Receipt Date: 20050913
  Transmission Date: 20061013
  Serious: Yes (Hospitalization)
  Sender: FDA-Public Use
  Company Number: US-MERCK-0509USA01804

PATIENT
  Age: 66 Year
  Sex: Female
  Weight: 75 kg

DRUGS (7)
  1. VIOXX [Suspect]
     Indication: ARTHRITIS
     Route: 048
     Dates: start: 20000501, end: 20040901
  2. ALLEGRA [Concomitant]
     Route: 065
  3. ZANTAC [Concomitant]
     Route: 065
  4. GLUCOSAMINE [Concomitant]
     Route: 065
  5. GINKGO [Concomitant]
     Route: 065
  6. CITRACAL [Concomitant]
     Route: 065
  7. LORTAB [Concomitant]
     Route: 065

REACTIONS (10)
  - ATRIAL FIBRILLATION [None]
  - BLOOD PRESSURE DECREASED [None]
  - DERMATITIS CONTACT [None]
  - ENDOMETRIAL CANCER [None]
  - HYPERSENSITIVITY [None]
  - MYOCARDIAL INFARCTION [None]
  - PARANASAL SINUS HYPERSECRETION [None]
  - RASH ERYTHEMATOUS [None]
  - SINUS DISORDER [None]
  - SKIN CANCER [None]
